FAERS Safety Report 22334571 (Version 1)
Quarter: 2023Q2

REPORT INFORMATION
  Report Type: Spontaneous
  Country: US (occurrence: None)
  Receive Date: 20230517
  Receipt Date: 20230517
  Transmission Date: 20230721
  Serious: No
  Sender: FDA-Public Use
  Company Number: US-ROCHE-3152683

PATIENT
  Age: 7 Year
  Sex: Female
  Weight: 25.878 kg

DRUGS (5)
  1. ACTEMRA [Suspect]
     Active Substance: TOCILIZUMAB
     Indication: Juvenile idiopathic arthritis
     Route: 058
     Dates: start: 20220528
  2. ACTEMRA [Suspect]
     Active Substance: TOCILIZUMAB
  3. ACTEMRA [Suspect]
     Active Substance: TOCILIZUMAB
  4. CLARITIN [Concomitant]
     Active Substance: LORATADINE
     Indication: Seasonal allergy
     Dosage: STARTED BEFORE ACTEMRA ABOUT 3 YEARS AGO, ONGOING: YES
     Route: 048
  5. PROBIOTIC (UNK INGREDIENTS) [Concomitant]
     Indication: Constipation
     Route: 048
     Dates: start: 202206

REACTIONS (4)
  - Mass [Recovered/Resolved]
  - Incorrect dose administered [Unknown]
  - Device difficult to use [Unknown]
  - Pain [Recovered/Resolved]

NARRATIVE: CASE EVENT DATE: 20220528
